FAERS Safety Report 6106661-3 (Version None)
Quarter: 2009Q1

REPORT INFORMATION
  Report Type: 
  Country: None (occurrence: None)
  Receive Date: 20090304
  Receipt Date: 20090216
  Transmission Date: 20090719
  Serious: Yes (Death)
  Sender: FDA-Public Use
  Company Number: VAL_00214_2009

PATIENT

DRUGS (3)
  1. CALCITRIOL [Suspect]
     Indication: ANAEMIA
     Dosage: 1 UG QD, ORAL
     Route: 048
  2. ISOTRETINOIN [Suspect]
     Indication: ANAEMIA
     Dosage: 20 MG QD, ORAL
     Route: 048
  3. EPOETIN BETA (EPOETIN BETA) [Suspect]
     Indication: ANAEMIA
     Dosage: DF

REACTIONS (1)
  - HEPATIC CIRRHOSIS [None]
